FAERS Safety Report 19501334 (Version 1)
Quarter: 2021Q3

REPORT INFORMATION
  Report Type: Spontaneous
  Country: US (occurrence: US)
  Receive Date: 20210702
  Receipt Date: 20210702
  Transmission Date: 20211014
  Serious: No
  Sender: FDA-Public Use
  Company Number: None

PATIENT
  Age: 68 Year
  Sex: Male

DRUGS (6)
  1. IBRANCE [Suspect]
     Active Substance: PALBOCICLIB
     Indication: BREAST CANCER
     Route: 048
     Dates: start: 20210621
  2. FUROSEMIDE. [Concomitant]
     Active Substance: FUROSEMIDE
  3. IRON SUPPLEMENTS [Concomitant]
     Active Substance: IRON
  4. CALCIUM SUPPLEMENTS [Concomitant]
     Active Substance: CALCIUM
  5. GABAPENTIN. [Concomitant]
     Active Substance: GABAPENTIN
  6. ANASTRAZOLE [Concomitant]
     Active Substance: ANASTROZOLE

REACTIONS (2)
  - Alopecia [None]
  - Fatigue [None]

NARRATIVE: CASE EVENT DATE: 20210701
